FAERS Safety Report 7526187-X (Version None)
Quarter: 2011Q2

REPORT INFORMATION
  Report Type: 
  Country: None (occurrence: None)
  Receive Date: 20110606
  Receipt Date: 20100625
  Transmission Date: 20111010
  Serious: No
  Sender: FDA-Public Use
  Company Number: US-BRISTOL-MYERS SQUIBB COMPANY-15066335

PATIENT
  Sex: Female

DRUGS (2)
  1. SUSTIVA [Suspect]
     Route: 065
  2. SUSTIVA [Suspect]
     Route: 065

REACTIONS (3)
  - PREGNANCY [None]
  - ACCIDENTAL EXPOSURE [None]
  - NO ADVERSE EVENT [None]
